FAERS Safety Report 14382473 (Version 2)
Quarter: 2018Q1

REPORT INFORMATION
  Report Type: Spontaneous
  Country: US (occurrence: US)
  Receive Date: 20180112
  Receipt Date: 20180119
  Transmission Date: 20180509
  Serious: No
  Sender: FDA-Public Use
  Company Number: US-009507513-1801USA001864

PATIENT
  Age: 60 Year
  Sex: Female

DRUGS (2)
  1. EMEND [Suspect]
     Active Substance: APREPITANT
     Indication: NON-SMALL CELL LUNG CANCER
     Dosage: 150MG IV FOR ONE DOSE
     Route: 042
     Dates: start: 20180104, end: 20180104
  2. CISPLATIN. [Concomitant]
     Active Substance: CISPLATIN

REACTIONS (6)
  - Anxiety [Not Recovered/Not Resolved]
  - Flushing [Recovering/Resolving]
  - Dizziness [Recovering/Resolving]
  - Product use in unapproved indication [Unknown]
  - Back pain [Recovering/Resolving]
  - Dyspepsia [Recovering/Resolving]

NARRATIVE: CASE EVENT DATE: 20180104
